FAERS Safety Report 6773281-7 (Version None)
Quarter: 2010Q2

REPORT INFORMATION
  Report Type: 
  Country: None (occurrence: None)
  Receive Date: 20100614
  Receipt Date: 20100608
  Transmission Date: 20101027
  Serious: Yes (Hospitalization)
  Sender: FDA-Public Use
  Company Number: 2010SP032052

PATIENT
  Age: 35 Year
  Sex: Male
  Weight: 95 kg

DRUGS (1)
  1. DESLORATADINE [Suspect]
     Indication: SEASONAL ALLERGY
     Dosage: 5 MG;QD;PO
     Route: 048
     Dates: start: 20100410, end: 20100526

REACTIONS (2)
  - HEPATITIS [None]
  - PANCREATITIS [None]
